FAERS Safety Report 9090963 (Version 1)
Quarter: 2013Q1

REPORT INFORMATION
  Report Type: Report from Study
  Country: US (occurrence: US)
  Receive Date: 20130201
  Receipt Date: 20130201
  Transmission Date: 20140127
  Serious: No
  Sender: FDA-Public Use
  Company Number: US-ABBOTT-12P-163-1023005-00

PATIENT
  Age: 41 Year
  Sex: Female

DRUGS (10)
  1. HUMIRA [Suspect]
     Indication: CROHN^S DISEASE
     Dosage: LOADING DOSE
     Route: 058
     Dates: start: 20121207, end: 20121207
  2. HUMIRA [Suspect]
     Route: 058
     Dates: start: 20121208, end: 20121208
  3. HUMIRA [Suspect]
     Route: 058
  4. 6-MP [Concomitant]
     Indication: PRODUCT USED FOR UNKNOWN INDICATION
  5. PENTASA [Concomitant]
     Indication: PRODUCT USED FOR UNKNOWN INDICATION
  6. BIRTH CONTROL INJECTION [Concomitant]
     Indication: CONTRACEPTION
  7. ZOFRAN [Concomitant]
     Indication: NAUSEA
  8. FLAGYL [Concomitant]
     Indication: ABSCESS
  9. CIPRO [Concomitant]
     Indication: ABSCESS
  10. EXCEDRIN MIGRAINE [Concomitant]
     Indication: MIGRAINE

REACTIONS (4)
  - Wrong technique in drug usage process [Unknown]
  - Hypoaesthesia [Not Recovered/Not Resolved]
  - Injection site bruising [Not Recovered/Not Resolved]
  - Migraine [Not Recovered/Not Resolved]
